FAERS Safety Report 9603012 (Version 2)
Quarter: 2013Q4

REPORT INFORMATION
  Report Type: Report from Study
  Country: ZA (occurrence: ZA)
  Receive Date: 20131007
  Receipt Date: 20131021
  Transmission Date: 20140711
  Serious: Yes (Hospitalization, Other)
  Sender: FDA-Public Use
  Company Number: ZA-CELGENEUS-143-21880-13093456

PATIENT
  Age: 68 Year
  Sex: Male
  Weight: 82.2 kg

DRUGS (12)
  1. REVLIMID [Suspect]
     Indication: MYELODYSPLASTIC SYNDROME
     Dosage: 10 MILLIGRAM
     Route: 048
     Dates: start: 20130916, end: 20130921
  2. REVLIMID [Suspect]
     Route: 048
     Dates: start: 20130926
  3. VIDAZA [Suspect]
     Indication: MYELODYSPLASTIC SYNDROME
     Dosage: 150 MILLIGRAM
     Route: 058
     Dates: start: 20130909, end: 20130915
  4. VIDAZA [Suspect]
     Dosage: 150 MILLIGRAM
     Route: 058
     Dates: start: 20131007, end: 20131013
  5. IMODIUM [Concomitant]
     Indication: PROPHYLAXIS
     Route: 048
  6. MAXOLON [Concomitant]
     Indication: NAUSEA
     Dosage: 30 MILLIGRAM
     Route: 048
     Dates: start: 20130909
  7. ZOFRAN [Concomitant]
     Indication: NAUSEA
     Dosage: 16 MILLIGRAM
     Route: 048
     Dates: start: 20130911
  8. PANADO [Concomitant]
     Indication: PAIN
     Dosage: 3 GRAM
     Route: 048
     Dates: start: 20130921
  9. ATERAX [Concomitant]
     Indication: RASH
     Dosage: 50 MILLIGRAM
     Route: 048
     Dates: start: 20130930
  10. BETNOVATE [Concomitant]
     Indication: RASH
     Route: 003
     Dates: start: 20130930, end: 20131007
  11. DAKTARIN [Concomitant]
     Indication: ERYTHEMA
     Route: 048
     Dates: start: 20130930
  12. GLYCOTHYMOL [Concomitant]
     Indication: ERYTHEMA
     Route: 065
     Dates: start: 20130930

REACTIONS (2)
  - Epistaxis [Recovered/Resolved]
  - Epistaxis [Unknown]
